FAERS Safety Report 7493739-5 (Version None)
Quarter: 2011Q2

REPORT INFORMATION
  Report Type: 
  Country: None (occurrence: None)
  Receive Date: 20110520
  Receipt Date: 20110512
  Transmission Date: 20111010
  Serious: Yes (Hospitalization)
  Sender: FDA-Public Use
  Company Number: JP-B.I. PHARMACEUTICALS,INC./RIDGEFIELD-2011-BP-12904NB

PATIENT
  Age: 86 Year
  Sex: Male

DRUGS (7)
  1. SUNRYTHM [Suspect]
     Dosage: 3 DF DAILY
     Route: 048
  2. RABEPRAZOLE SODIUM [Suspect]
     Dosage: 10 MG
     Route: 048
  3. PRADAXA [Suspect]
     Indication: ATRIAL FIBRILLATION
     Dosage: 220 MG
     Route: 048
     Dates: start: 20110402, end: 20110511
  4. FLIVAS [Concomitant]
     Dosage: 2 DF DAILY
     Route: 048
  5. URSO 250 [Concomitant]
     Dosage: 3 DF DAILY
     Route: 048
  6. ALLOPURINOL [Concomitant]
     Dosage: 2DE DAILY
     Route: 048
  7. MAGMITT [Suspect]
     Dosage: 660 MG
     Route: 048

REACTIONS (3)
  - HICCUPS [None]
  - OESOPHAGEAL HAEMORRHAGE [None]
  - REFLUX OESOPHAGITIS [None]
